FAERS Safety Report 22520877 (Version 1)
Quarter: 2023Q2

REPORT INFORMATION
  Report Type: Report from Study
  Country: MX (occurrence: MX)
  Receive Date: 20230605
  Receipt Date: 20230605
  Transmission Date: 20230722
  Serious: Yes (Death)
  Sender: FDA-Public Use
  Company Number: MX-TEVA-2023-MX-2894208

PATIENT

DRUGS (10)
  1. METHOTREXATE [Suspect]
     Active Substance: METHOTREXATE
     Indication: B-cell type acute leukaemia
     Dosage: ON DAYS 10, 20, 30, 40
     Route: 065
  2. METHOTREXATE [Suspect]
     Active Substance: METHOTREXATE
     Dosage: TRIPLE INTRATHECAL THERAPY ON DAYS 8, 15, 22 AND 29 AS A PART OF REMISSION INDUCTION AND ON DAYS ...
     Route: 037
  3. PREDNISONE [Suspect]
     Active Substance: PREDNISONE
     Indication: B-cell type acute leukaemia
     Dosage: ON DAYS 1-29
     Route: 048
  4. VINCRISTINE [Suspect]
     Active Substance: VINCRISTINE
     Indication: B-cell type acute leukaemia
     Dosage: ON DAYS 8, 15, 22 AND 29 AS A PART OF REMISSION INDUCTION AND ON DAYS 10-30 AS A PART OF CONSOLID...
     Route: 042
  5. ASPARAGINASE [Suspect]
     Active Substance: ASPARAGINASE
     Indication: B-cell type acute leukaemia
     Dosage: 6,000 UI/M2 ON DAYS 8, 10, 12, 15, 17, 19, 22, 24, 26 AS A PART OF REMISSION INDUCTION AND 6,000 ...
     Route: 030
  6. MITOXANTRONE [Suspect]
     Active Substance: MITOXANTRONE HYDROCHLORIDE
     Indication: B-cell type acute leukaemia
     Dosage: ON DAYS 8, 15, 22, 29
     Route: 042
  7. RITUXIMAB [Suspect]
     Active Substance: RITUXIMAB
     Indication: B-cell type acute leukaemia
     Dosage: ON DAY 8-22
     Route: 042
  8. CYTARABINE [Suspect]
     Active Substance: CYTARABINE
     Indication: B-cell type acute leukaemia
     Dosage: TRIPLE INTRATHECAL THERAPY ON DAYS 8, 15, 22 AND 29 AS A PART OF REMISSION INDUCTION AND ON DAYS ...
     Route: 037
  9. HYDROCORTISONE [Suspect]
     Active Substance: HYDROCORTISONE
     Indication: B-cell type acute leukaemia
     Dosage: TRIPLE INTRATHECAL THERAPY ON DAYS 8, 15, 22 AND 29 AS A PART OF REMISSION INDUCTION AND ON DAYS ...
     Route: 037
  10. CYCLOPHOSPHAMIDE [Suspect]
     Active Substance: CYCLOPHOSPHAMIDE
     Indication: B-cell type acute leukaemia
     Dosage: ON DAY 1
     Route: 042

REACTIONS (2)
  - Septic shock [Fatal]
  - Mucosal inflammation [Fatal]
